FAERS Safety Report 4649715-0 (Version None)
Quarter: 2005Q2

REPORT INFORMATION
  Report Type: 
  Country: None (occurrence: None)
  Receive Date: 20050427
  Receipt Date: 20050406
  Transmission Date: 20051028
  Serious: Yes (Hospitalization)
  Sender: FDA-Public Use
  Company Number: US_0504115349

PATIENT
  Age: 78 Year
  Sex: Male
  Weight: 93 kg

DRUGS (5)
  1. ALIMTA [Suspect]
     Indication: NON-SMALL CELL LUNG CANCER
     Dosage: 1000 MG
  2. FOLIC ACID [Concomitant]
  3. VITAMIN B-12 [Concomitant]
  4. AMIODARONE [Concomitant]
  5. ASPIRIN [Concomitant]

REACTIONS (5)
  - ATRIAL FLUTTER [None]
  - CARDIAC FIBRILLATION [None]
  - DYSPNOEA EXACERBATED [None]
  - WHEEZING [None]
  - WHITE BLOOD CELL COUNT INCREASED [None]
